FAERS Safety Report 4846084-8 (Version None)
Quarter: 2005Q4

REPORT INFORMATION
  Report Type: 
  Country: None (occurrence: None)
  Receive Date: 20051130
  Receipt Date: 20051115
  Transmission Date: 20060501
  Serious: Yes (Other)
  Sender: FDA-Public Use
  Company Number: 2005-134712-NL

PATIENT

DRUGS (1)
  1. ZEMURON [Suspect]
     Indication: INTUBATION
     Dosage: DF INTRAVENOUS (NOS)
     Route: 042
     Dates: start: 20040101, end: 20040101

REACTIONS (3)
  - APNOEA [None]
  - NEUROMUSCULAR BLOCK PROLONGED [None]
  - PARALYSIS [None]
